FAERS Safety Report 4441256-9 (Version None)
Quarter: 2004Q3

REPORT INFORMATION
  Report Type: 
  Country: None (occurrence: None)
  Receive Date: 20040728
  Receipt Date: 20040426
  Transmission Date: 20050211
  Serious: No
  Sender: FDA-Public Use
  Company Number: USA040466060

PATIENT
  Age: 61 Year
  Sex: Female

DRUGS (6)
  1. STRATTERA [Suspect]
     Indication: DEPRESSION
     Dosage: 80 MG DAY
     Dates: start: 20040401
  2. ATENOLOL [Concomitant]
  3. CRESTOR [Concomitant]
  4. AMBIEN [Concomitant]
  5. PAXIL [Concomitant]
  6. DURA-VENT [Concomitant]

REACTIONS (4)
  - AFFECT LABILITY [None]
  - BRONCHITIS [None]
  - CRYING [None]
  - HYPERHIDROSIS [None]
